FAERS Safety Report 6941405-4 (Version None)
Quarter: 2010Q3

REPORT INFORMATION
  Report Type: 
  Country: None (occurrence: None)
  Receive Date: 20100825
  Receipt Date: 20100811
  Transmission Date: 20110219
  Serious: Yes (Hospitalization)
  Sender: FDA-Public Use
  Company Number: FR-MYLANLABS-2010S1014526

PATIENT
  Age: 87 Year
  Sex: Female

DRUGS (11)
  1. INDAPAMIDE [Suspect]
     Indication: HYPERTENSION
     Dates: end: 20100414
  2. FLUOXETINE [Suspect]
     Indication: DEPRESSION
     Dates: start: 20070101, end: 20100414
  3. CEFPODOXIME PROXETIL [Suspect]
     Dates: start: 20100407, end: 20100412
  4. FORLAX [Suspect]
     Indication: CONSTIPATION
     Dates: start: 20100223
  5. PROPOFAN [Concomitant]
  6. ACTONEL [Concomitant]
  7. IDEOS [Concomitant]
  8. KARDEGIC [Concomitant]
  9. INIPOMP [Concomitant]
  10. LORAZEPAM [Concomitant]
  11. BETAHISTINE [Concomitant]

REACTIONS (4)
  - DIARRHOEA [None]
  - FALL [None]
  - HYPOKALAEMIA [None]
  - HYPONATRAEMIA [None]
